FAERS Safety Report 16095927 (Version 2)
Quarter: 2019Q1

REPORT INFORMATION
  Report Type: Spontaneous
  Country: US (occurrence: US)
  Receive Date: 20190320
  Receipt Date: 20190327
  Transmission Date: 20190418
  Serious: No
  Sender: FDA-Public Use
  Company Number: US-SA-2019SA070528

PATIENT
  Age: 65 Year
  Sex: Female

DRUGS (2)
  1. PRALUENT [Suspect]
     Active Substance: ALIROCUMAB
     Indication: TYPE IIA HYPERLIPIDAEMIA
     Dosage: 75 MG, QOW
     Route: 058
  2. ATARAX [ALPRAZOLAM] [Suspect]
     Active Substance: ALPRAZOLAM

REACTIONS (8)
  - Injection site haemorrhage [Unknown]
  - Nervousness [Unknown]
  - Tremor [Unknown]
  - Underdose [Unknown]
  - Chest pain [Unknown]
  - Otorrhoea [Recovering/Resolving]
  - Device issue [Unknown]
  - Muscle spasms [Unknown]

NARRATIVE: CASE EVENT DATE: 201902
